FAERS Safety Report 8480592-6 (Version None)
Quarter: 2012Q3

REPORT INFORMATION
  Report Type: 
  Country: None (occurrence: None)
  Receive Date: 20120702
  Receipt Date: 20120621
  Transmission Date: 20120928
  Serious: No
  Sender: FDA-Public Use
  Company Number: US-BIOGENIDEC-2012BI019716

PATIENT
  Sex: Female

DRUGS (2)
  1. AVONEX [Suspect]
     Indication: MULTIPLE SCLEROSIS
     Route: 030
     Dates: start: 20120405
  2. AVONEX [Suspect]
     Route: 030
     Dates: start: 20120412

REACTIONS (4)
  - WEIGHT INCREASED [None]
  - INFLUENZA LIKE ILLNESS [None]
  - FATIGUE [None]
  - TOOTH DISORDER [None]
